FAERS Safety Report 13197613 (Version 1)
Quarter: 2017Q1

REPORT INFORMATION
  Report Type: Spontaneous
  Country: MX (occurrence: MX)
  Receive Date: 20170208
  Receipt Date: 20170208
  Transmission Date: 20170428
  Serious: Yes (Death, Other)
  Sender: FDA-Public Use
  Company Number: MX-NOVOPROD-529871

PATIENT
  Age: 60 Year
  Sex: Male

DRUGS (1)
  1. TRESIBA [Suspect]
     Active Substance: INSULIN DEGLUDEC
     Indication: DIABETES MELLITUS
     Dosage: UNK
     Route: 065
     Dates: start: 20130806

REACTIONS (2)
  - Surgery [Unknown]
  - Death [Fatal]

NARRATIVE: CASE EVENT DATE: 201506
